FAERS Safety Report 6603681-7 (Version None)
Quarter: 2010Q1

REPORT INFORMATION
  Report Type: 
  Country: None (occurrence: None)
  Receive Date: 20100226
  Receipt Date: 20090826
  Transmission Date: 20100710
  Serious: No
  Sender: FDA-Public Use
  Company Number: US-TYCO HEALTHCARE/MALLINCKRODT-T200901594

PATIENT
  Age: 70 Year
  Sex: Male
  Weight: 78.912 kg

DRUGS (2)
  1. PROPOXYPHENE HCL AND ACETAMINOPHEN [Suspect]
     Indication: PAIN
     Dosage: 3 TABS DAILY
     Route: 048
     Dates: start: 20090816, end: 20090824
  2. TRAZODONE HCL [Concomitant]
     Indication: SLEEP DISORDER
     Dosage: HS
     Route: 048

REACTIONS (1)
  - HYPERSENSITIVITY [None]
